FAERS Safety Report 23523475 (Version 2)
Quarter: 2024Q2

REPORT INFORMATION
  Report Type: Spontaneous
  Country: US (occurrence: US)
  Receive Date: 20240214
  Receipt Date: 20240625
  Transmission Date: 20240716
  Serious: No
  Sender: FDA-Public Use
  Company Number: US-SA-SAC20240207000808

PATIENT
  Age: 61 Year
  Sex: Female
  Weight: 63.5 kg

DRUGS (9)
  1. DUPIXENT [Suspect]
     Active Substance: DUPILUMAB
     Indication: Dermatitis atopic
     Dosage: 300 MG, QOW
     Route: 058
     Dates: start: 20230218
  2. DUPIXENT [Suspect]
     Active Substance: DUPILUMAB
     Indication: Dermatitis atopic
     Dosage: 300 MG, QW
     Route: 058
  3. DOXEPIN [Concomitant]
     Active Substance: DOXEPIN
  4. LEVETIRACETAM [Concomitant]
     Active Substance: LEVETIRACETAM
  5. FAMOTIDINE [Concomitant]
     Active Substance: FAMOTIDINE
  6. VALACYCLOVIR [Concomitant]
     Active Substance: VALACYCLOVIR HYDROCHLORIDE
  7. BUDESONIDE [Concomitant]
     Active Substance: BUDESONIDE
  8. BUPROPION [Concomitant]
     Active Substance: BUPROPION
  9. FLUOXETINE [Concomitant]
     Active Substance: FLUOXETINE HYDROCHLORIDE

REACTIONS (5)
  - Skin haemorrhage [Unknown]
  - Scratch [Unknown]
  - Pruritus [Not Recovered/Not Resolved]
  - Eczema [Not Recovered/Not Resolved]
  - Loss of therapeutic response [Unknown]
